FAERS Safety Report 8582631-0 (Version None)
Quarter: 2012Q3

REPORT INFORMATION
  Report Type: 
  Country: None (occurrence: None)
  Receive Date: 20120809
  Receipt Date: 20120731
  Transmission Date: 20120928
  Serious: No
  Sender: FDA-Public Use
  Company Number: US-ASTRAZENECA-2010SE61348

PATIENT
  Age: 70 Year
  Sex: Female

DRUGS (13)
  1. CYCLOBENZAPRINE HCL [Concomitant]
     Indication: MYALGIA
  2. PRAVASTATIN SODIUM [Concomitant]
  3. NEXIUM [Suspect]
     Indication: GASTRIC DISORDER
     Route: 048
     Dates: start: 20110209
  4. CARVEDILOL [Concomitant]
  5. PREDNISOLONE [Concomitant]
  6. ALBUTEROL SULFATE [Concomitant]
  7. HYDROCODONE BITARTRATE + ACETAMINOPHEN [Concomitant]
     Indication: PAIN
  8. CLONIDINE HCL [Concomitant]
     Indication: BLOOD PRESSURE ABNORMAL
  9. HYDROCHLOROTHIAZIDE [Concomitant]
  10. LUMIGAN [Concomitant]
  11. AMOXICILLIN [Concomitant]
     Indication: INFECTION
  12. METROGEL [Concomitant]
  13. RANITIDINE HCL [Concomitant]
     Indication: GASTRIC DISORDER

REACTIONS (8)
  - INFECTION [None]
  - MYALGIA [None]
  - DRUG DOSE OMISSION [None]
  - VOMITING [None]
  - GASTROOESOPHAGEAL REFLUX DISEASE [None]
  - OESOPHAGEAL DISORDER [None]
  - BLOOD PRESSURE ABNORMAL [None]
  - PAIN [None]
